FAERS Safety Report 9722950 (Version 1)
Quarter: 2013Q4

REPORT INFORMATION
  Report Type: Spontaneous
  Country: US (occurrence: None)
  Receive Date: 20131126
  Receipt Date: 20131126
  Transmission Date: 20140711
  Serious: Yes (Hospitalization, Other)
  Sender: FDA-Public Use
  Company Number: 2013-US-002639

PATIENT
  Age: 66 Year
  Sex: Female

DRUGS (22)
  1. PRIALT [Suspect]
     Indication: COMPLEX REGIONAL PAIN SYNDROME
     Dosage: UNK UG, QH, INTRATHECAL
     Route: 037
  2. PRIALT [Suspect]
     Indication: COMPLEX REGIONAL PAIN SYNDROME
     Dosage: UNK UG, QH, INTRATHECAL
     Route: 037
  3. PRIALT [Suspect]
     Indication: COMPLEX REGIONAL PAIN SYNDROME
     Dosage: UNK UG, QH, INTRATHECAL
     Route: 037
  4. PRIALT [Suspect]
     Indication: SPINAL PAIN
     Dosage: UNK UG, QH, INTRATHECAL
     Route: 037
  5. PRIALT [Suspect]
     Indication: PAIN
     Dosage: UNK UG, QH, INTRATHECAL
     Route: 037
  6. PRIALT [Suspect]
     Indication: PAIN
     Dosage: UNK UG, QH, INTRATHECAL
     Route: 037
  7. INFUMORPH [Suspect]
     Indication: COMPLEX REGIONAL PAIN SYNDROME
     Dosage: UNK MG, QH
  8. INFUMORPH [Suspect]
     Indication: SPINAL PAIN
     Dosage: UNK MG, QH
  9. INFUMORPH [Suspect]
     Indication: PAIN
     Dosage: UNK MG, QH
  10. MORPHINE SULFATE (MORPHINE SULFATE) INJECTION [Suspect]
     Indication: COMPLEX REGIONAL PAIN SYNDROME
     Dosage: UNK MG, QH, INTRATHECAL
     Route: 037
  11. MORPHINE SULFATE (MORPHINE SULFATE) INJECTION [Suspect]
     Indication: SPINAL PAIN
     Dosage: UNK MG, QH, INTRATHECAL
     Route: 037
  12. MORPHINE SULFATE (MORPHINE SULFATE) INJECTION [Suspect]
     Indication: PAIN
     Dosage: UNK MG, QH, INTRATHECAL
     Route: 037
  13. XANAX (ALPRAZOLAM) [Concomitant]
  14. ELAVIL (AMITRIPTYLINE HYDROCHLORIDE) [Concomitant]
  15. CARDURA (DOXAZOSIN MESILATE) [Concomitant]
  16. NEXIUM (ESOMEPRAZOLE MAGNESIUM) [Concomitant]
  17. DILAUDID (HYDROMORPHONE HYDROCHLORIDE) [Concomitant]
  18. KEPPRA (LEVETIRACETAM) [Concomitant]
  19. SYNTHROID (LEVOTHYROXINE SODIUM) [Concomitant]
  20. MIRAPEX (PRAMIPEXOLE DHYDROCHLORIDE) [Concomitant]
  21. LYRICA (PREGABALIN) [Concomitant]
  22. ZOLOFT (SERTRALINE HYDROCHLORIDE) [Concomitant]

REACTIONS (27)
  - Lung infiltration [None]
  - Acquired diaphragmatic eventration [None]
  - Suicidal ideation [None]
  - Atelectasis [None]
  - Mental status changes [None]
  - Hallucination [None]
  - Drug withdrawal syndrome [None]
  - Activities of daily living impaired [None]
  - Hypophagia [None]
  - Dyspnoea [None]
  - Pulmonary congestion [None]
  - Wheezing [None]
  - Impulsive behaviour [None]
  - Cognitive disorder [None]
  - Disturbance in attention [None]
  - Memory impairment [None]
  - Insomnia [None]
  - Nausea [None]
  - Vomiting [None]
  - Abdominal pain [None]
  - Dysarthria [None]
  - Pressure of speech [None]
  - Asthenia [None]
  - Anxiety [None]
  - Device breakage [None]
  - Device malfunction [None]
  - Pain [None]
